FAERS Safety Report 16932927 (Version 1)
Quarter: 2019Q4

REPORT INFORMATION
  Report Type: Spontaneous
  Country: PL (occurrence: PL)
  Receive Date: 20191018
  Receipt Date: 20191018
  Transmission Date: 20200122
  Serious: Yes (Other)
  Sender: FDA-Public Use
  Company Number: NVSC2019PL006103

PATIENT
  Age: 52 Year
  Sex: Male

DRUGS (6)
  1. TAFINLAR [Suspect]
     Active Substance: DABRAFENIB MESYLATE
     Indication: METASTATIC MALIGNANT MELANOMA
     Dosage: 600 MG
     Route: 048
     Dates: start: 20181211
  2. TAFINLAR [Suspect]
     Active Substance: DABRAFENIB MESYLATE
     Dosage: UNK
     Route: 048
     Dates: start: 20190213
  3. MEKINIST [Suspect]
     Active Substance: TRAMETINIB DIMETHYL SULFOXIDE
     Dosage: UNK
     Route: 048
     Dates: start: 20190128, end: 20190212
  4. MEKINIST [Suspect]
     Active Substance: TRAMETINIB DIMETHYL SULFOXIDE
     Dosage: UNK
     Route: 048
     Dates: start: 20190213
  5. TAFINLAR [Suspect]
     Active Substance: DABRAFENIB MESYLATE
     Dosage: UNK
     Route: 048
     Dates: start: 20190128, end: 20190212
  6. MEKINIST [Suspect]
     Active Substance: TRAMETINIB DIMETHYL SULFOXIDE
     Indication: METASTATIC MALIGNANT MELANOMA
     Dosage: 3 MG
     Route: 048
     Dates: start: 20181211

REACTIONS (10)
  - Heart rate increased [Unknown]
  - Heart sounds abnormal [Unknown]
  - Blood lactate dehydrogenase increased [Unknown]
  - Alanine aminotransferase increased [Unknown]
  - Cardiac tamponade [Unknown]
  - Jugular vein distension [Unknown]
  - Platelet count increased [Unknown]
  - Aspartate aminotransferase increased [Unknown]
  - Hypotension [Unknown]
  - Cough [Unknown]
